FAERS Safety Report 16499721 (Version 1)
Quarter: 2019Q3

REPORT INFORMATION
  Report Type: Report from Study
  Country: CA (occurrence: CA)
  Receive Date: 20190701
  Receipt Date: 20190701
  Transmission Date: 20191004
  Serious: Yes (Other)
  Sender: FDA-Public Use
  Company Number: CA-ORION CORPORATION ORION PHARMA-TREX2019-2079

PATIENT
  Age: 64 Year
  Sex: Female

DRUGS (7)
  1. COSENTYX [Suspect]
     Active Substance: SECUKINUMAB
     Indication: PSORIASIS
     Route: 058
  2. METHOTREXATE (TRADE NAME UNKNOWN) [Suspect]
     Active Substance: METHOTREXATE
     Indication: PRODUCT USED FOR UNKNOWN INDICATION
     Route: 065
  3. CICLOSPORIN [Suspect]
     Active Substance: CYCLOSPORINE
     Indication: PRODUCT USED FOR UNKNOWN INDICATION
     Route: 065
  4. COSENTYX [Suspect]
     Active Substance: SECUKINUMAB
     Route: 058
  5. ACITRETIN. [Concomitant]
     Active Substance: ACITRETIN
     Route: 065
  6. BETAMETHASONE DIPROPIONATE/CALCIPOTRIOL [Concomitant]
     Route: 065
  7. COAL TAR W/ZINC OXIDE [Concomitant]
     Route: 065

REACTIONS (7)
  - Constipation [Not Recovered/Not Resolved]
  - Dry throat [Not Recovered/Not Resolved]
  - Ovarian cancer [Not Recovered/Not Resolved]
  - Candida infection [Not Recovered/Not Resolved]
  - Fatigue [Not Recovered/Not Resolved]
  - Mass [Not Recovered/Not Resolved]
  - Dry mouth [Not Recovered/Not Resolved]
